FAERS Safety Report 9890788 (Version 2)
Quarter: 2014Q1

REPORT INFORMATION
  Report Type: Spontaneous
  Country: US (occurrence: None)
  Receive Date: 20140207
  Receipt Date: 20140305
  Transmission Date: 20141002
  Serious: Yes (Disabling, Other)
  Sender: FDA-Public Use
  Company Number: 1401-0244

PATIENT
  Age: 72 Year
  Sex: Male

DRUGS (3)
  1. EYLEA(AFLIBERCEPT) (INJECTION) (AFLIBERCEPT) [Suspect]
     Indication: AGE-RELATED MACULAR DEGENERATION
     Dosage: INTRAVITREAL
     Dates: start: 20130709, end: 20140120
  2. NEOMYCIN/ POLYMYXIN/ DEXAME (NEOMYCIN POLYMIXIN) [Concomitant]
  3. PREDNISOLONE ACETATE (PREDNISOLONE ACETRATE) [Concomitant]

REACTIONS (3)
  - Vitritis [None]
  - Vision blurred [None]
  - Visual acuity reduced [None]
